FAERS Safety Report 6132545-0 (Version None)
Quarter: 2009Q1

REPORT INFORMATION
  Report Type: 
  Country: None (occurrence: None)
  Receive Date: 20090325
  Receipt Date: 20090318
  Transmission Date: 20090719
  Serious: Yes (Life-Threatening, Disabling)
  Sender: FDA-Public Use
  Company Number: US-MERCK-0903USA03215

PATIENT
  Age: 59 Year
  Sex: Female

DRUGS (4)
  1. JANUVIA [Suspect]
     Indication: TYPE 2 DIABETES MELLITUS
     Route: 048
     Dates: start: 20090201, end: 20090315
  2. JANUVIA [Suspect]
     Route: 048
     Dates: start: 20090317
  3. ASPIRIN [Concomitant]
     Route: 065
  4. VITAMINS (UNSPECIFIED) [Concomitant]
     Route: 065

REACTIONS (4)
  - MUSCULAR WEAKNESS [None]
  - PAIN [None]
  - SENSATION OF HEAVINESS [None]
  - TACHYCARDIA [None]
